FAERS Safety Report 9161070 (Version 2)
Quarter: 2013Q4

REPORT INFORMATION
  Report Type: Spontaneous
  Country: US (occurrence: US)
  Receive Date: 20130313
  Receipt Date: 20131001
  Transmission Date: 20140711
  Serious: Yes (Death, Hospitalization, Other)
  Sender: FDA-Public Use
  Company Number: US-B.I. PHARMACEUTICALS,INC./RIDGEFIELD-2013-BI-06647BP

PATIENT
  Age: 82 Year
  Sex: Male
  Weight: 81.65 kg

DRUGS (8)
  1. PRADAXA [Suspect]
     Indication: ANTICOAGULANT THERAPY
     Dosage: 300 MG
     Route: 048
     Dates: start: 20101116, end: 20110302
  2. PRADAXA [Suspect]
     Indication: ATRIAL FIBRILLATION
  3. AMLODIPINE [Concomitant]
     Dosage: 5 MG
  4. TOPROL [Concomitant]
     Dosage: 25 MG
  5. LIPITOR [Concomitant]
     Dosage: 40 MG
  6. LISINOPRIL [Concomitant]
     Dosage: 10 MG
  7. PLAVIX [Concomitant]
     Dosage: 75 MG
  8. ASPIRIN [Concomitant]
     Dosage: 81 MG

REACTIONS (6)
  - Gastrointestinal haemorrhage [Fatal]
  - Anaemia [Unknown]
  - Coagulopathy [Unknown]
  - Acute respiratory failure [Unknown]
  - Pneumonia aspiration [Unknown]
  - Renal failure acute [Unknown]
